FAERS Safety Report 16831625 (Version 1)
Quarter: 2019Q3

REPORT INFORMATION
  Report Type: Spontaneous
  Country: FR (occurrence: FR)
  Receive Date: 20190920
  Receipt Date: 20190920
  Transmission Date: 20191005
  Serious: Yes (Other)
  Sender: FDA-Public Use
  Company Number: FR-ELI_LILLY_AND_COMPANY-FR201909006782

PATIENT
  Age: 2 Year
  Sex: Female
  Weight: 10 kg

DRUGS (5)
  1. METRONIDAZOLE. [Concomitant]
     Active Substance: METRONIDAZOLE
  2. ECONAZOLE. [Concomitant]
     Active Substance: ECONAZOLE NITRATE
  3. GLUCIDION G [Suspect]
     Active Substance: DEXTROSE\POTASSIUM CHLORIDE\SODIUM CHLORIDE
     Indication: MINERAL SUPPLEMENTATION
     Dosage: UNK, UNKNOWN
     Route: 042
     Dates: start: 20190825, end: 20190828
  4. CEFOTAXIME SODIUM [Concomitant]
     Active Substance: CEFOTAXIME SODIUM
  5. HUMALOG [Suspect]
     Active Substance: INSULIN LISPRO
     Indication: TYPE 1 DIABETES MELLITUS
     Route: 042
     Dates: start: 20190825, end: 20190828

REACTIONS (4)
  - Off label use [Unknown]
  - Infusion site erythema [Recovered/Resolved]
  - Infusion site extravasation [Recovered/Resolved]
  - Infusion site oedema [Recovered/Resolved]

NARRATIVE: CASE EVENT DATE: 20190828
